FAERS Safety Report 11639427 (Version 2)
Quarter: 2015Q4

REPORT INFORMATION
  Report Type: Spontaneous
  Country: GB (occurrence: GB)
  Receive Date: 20151019
  Receipt Date: 20151019
  Transmission Date: 20160304
  Serious: Yes (Other)
  Sender: FDA-Public Use
  Company Number: US-BIO PRODUCTS LABORATORY LTD-1043081

PATIENT
  Age: 65 Year
  Sex: Male

DRUGS (10)
  1. ASPIRIN. [Concomitant]
     Active Substance: ASPIRIN
     Route: 065
  2. GLICLAZIDE [Concomitant]
     Active Substance: GLICLAZIDE
  3. LOSARTAN. [Concomitant]
     Active Substance: LOSARTAN
  4. GAMMAPLEX [Suspect]
     Active Substance: HUMAN IMMUNOGLOBULIN G
     Indication: MYASTHENIA GRAVIS
     Route: 042
  5. DOXAZOSIN [Concomitant]
     Active Substance: DOXAZOSIN\DOXAZOSIN MESYLATE
  6. PIOGLITAZONE. [Concomitant]
     Active Substance: PIOGLITAZONE
  7. PYRIODOSTIGMINE [Concomitant]
  8. OMACOR [Concomitant]
     Active Substance: OMEGA-3-ACID ETHYL ESTERS
  9. GLUCOSAMINE [Concomitant]
     Active Substance: GLUCOSAMINE
  10. METFORMIN [Concomitant]
     Active Substance: METFORMIN HYDROCHLORIDE

REACTIONS (4)
  - Confusional state [Unknown]
  - Amnesia [Unknown]
  - Transient ischaemic attack [Unknown]
  - Aphasia [Unknown]
